FAERS Safety Report 7170525-7 (Version None)
Quarter: 2010Q4

REPORT INFORMATION
  Report Type: 
  Country: None (occurrence: None)
  Receive Date: 20101217
  Receipt Date: 20101207
  Transmission Date: 20110411
  Serious: Yes (Hospitalization)
  Sender: FDA-Public Use
  Company Number: PHHY2010PL81314

PATIENT
  Sex: Female

DRUGS (1)
  1. EXTAVIA [Suspect]
     Indication: MULTIPLE SCLEROSIS
     Dosage: 250 UG, QOD
     Route: 058
     Dates: start: 20080807

REACTIONS (9)
  - ABDOMINAL ABSCESS [None]
  - ABSCESS DRAINAGE [None]
  - APPENDICITIS [None]
  - INJECTION SITE ERYTHEMA [None]
  - INJECTION SITE PAIN [None]
  - MALAISE [None]
  - PROTEINURIA [None]
  - PYREXIA [None]
  - URINE KETONE BODY PRESENT [None]
